FAERS Safety Report 7379837-5 (Version None)
Quarter: 2011Q1

REPORT INFORMATION
  Report Type: 
  Country: None (occurrence: None)
  Receive Date: 20110318
  Receipt Date: 20110310
  Transmission Date: 20110831
  Serious: Yes (Life-Threatening)
  Sender: FDA-Public Use
  Company Number: 114159

PATIENT
  Age: 85 Year
  Sex: Female

DRUGS (1)
  1. DOBUTAMINE INJ. USP 250MG/20ML - BEDFORD LABS, INC. [Suspect]
     Indication: STRESS ECHOCARDIOGRAM
     Dosage: 10UG/KG/MIN TO 30 UG/KG/MIN TOTAL

REACTIONS (1)
  - STRESS CARDIOMYOPATHY [None]
